FAERS Safety Report 5813938-5 (Version None)
Quarter: 2008Q3

REPORT INFORMATION
  Report Type: 
  Country: None (occurrence: None)
  Receive Date: 20080717
  Receipt Date: 20080709
  Transmission Date: 20090109
  Serious: Yes (Death, Hospitalization, Other)
  Sender: FDA-Public Use
  Company Number: SE-AMGEN-UK269843

PATIENT
  Sex: Female
  Weight: 0.6 kg

DRUGS (12)
  1. NEUPOGEN [Suspect]
     Indication: NEUTROPENIA
     Route: 065
     Dates: start: 20071217, end: 20071217
  2. CASPOFUNGIN [Concomitant]
     Route: 065
     Dates: start: 20071217, end: 20071220
  3. FLUCONAZOLE [Concomitant]
  4. AMPHOTERICIN B [Concomitant]
     Dates: start: 20071211, end: 20071220
  5. VANCOMYCIN HCL [Concomitant]
  6. RIFAMPICIN [Concomitant]
  7. FLAGYL [Concomitant]
  8. FURIX [Concomitant]
  9. GENTAMICIN [Concomitant]
  10. MERONEM [Concomitant]
  11. IBUPROFEN [Concomitant]
  12. PENICILLIN G [Concomitant]

REACTIONS (1)
  - MYOCARDITIS [None]
